FAERS Safety Report 4294250-5 (Version None)
Quarter: 2004Q1

REPORT INFORMATION
  Report Type: 
  Country: None (occurrence: None)
  Receive Date: 20040211
  Receipt Date: 20030902
  Transmission Date: 20041129
  Serious: No
  Sender: FDA-Public Use
  Company Number: US-BRISTOL-MYERS SQUIBB COMPANY-12371415

PATIENT
  Age: 42 Year
  Sex: Female
  Weight: 77 kg

DRUGS (2)
  1. ULTRAVATE [Suspect]
     Indication: ECZEMA
     Route: 061
     Dates: start: 20030703, end: 20030713
  2. PRILOSEC [Concomitant]

REACTIONS (1)
  - RASH ERYTHEMATOUS [None]
